FAERS Safety Report 6146797-4 (Version None)
Quarter: 2009Q2

REPORT INFORMATION
  Report Type: 
  Country: None (occurrence: None)
  Receive Date: 20090407
  Receipt Date: 20090402
  Transmission Date: 20091009
  Serious: Yes (Death)
  Sender: FDA-Public Use
  Company Number: DE-SANOFI-SYNTHELABO-A01200903567

PATIENT
  Sex: Male

DRUGS (10)
  1. DEXAMETHASONE [Concomitant]
     Dosage: UNK
     Dates: start: 20090325, end: 20090325
  2. METOHEXAL [Concomitant]
     Dosage: UNK
     Dates: start: 20070101
  3. OMEPRAZOL [Concomitant]
     Dosage: UNK
     Dates: start: 20080101
  4. METOCLOPRAMIDE [Concomitant]
     Dosage: UNK
     Dates: start: 20080101
  5. METAMIZOL [Concomitant]
     Dosage: UNK
     Dates: start: 20080301
  6. MORPHIN [Concomitant]
     Dosage: UNK
     Dates: start: 20080128
  7. FLUOROURACIL [Suspect]
     Dosage: UNK
     Route: 042
     Dates: start: 20090325, end: 20090327
  8. CALCIUM FOLINATE [Suspect]
     Dosage: UNK
     Route: 042
     Dates: start: 20090325, end: 20090325
  9. OXALIPLATIN [Suspect]
     Dosage: UNK
     Route: 042
     Dates: start: 20090325, end: 20090325
  10. GRANISETRON HCL [Concomitant]
     Dosage: UNK
     Dates: start: 20090325, end: 20090325

REACTIONS (1)
  - DEATH [None]
